FAERS Safety Report 9049675 (Version 1)
Quarter: 2013Q1

REPORT INFORMATION
  Report Type: Spontaneous
  Country: ES (occurrence: ES)
  Receive Date: 20130205
  Receipt Date: 20130205
  Transmission Date: 20140127
  Serious: Yes (Other)
  Sender: FDA-Public Use
  Company Number: ES-ALLERGAN-1301563US

PATIENT
  Age: 7 Year
  Sex: Male

DRUGS (1)
  1. BOTULINUM TOXIN TYPE A UNK [Suspect]
     Indication: MUSCLE SPASTICITY
     Dosage: UNK, SINGLE
     Route: 030
     Dates: start: 2007, end: 2007

REACTIONS (1)
  - Botulism [Recovered/Resolved]
